FAERS Safety Report 19570505 (Version 2)
Quarter: 2021Q3

REPORT INFORMATION
  Report Type: Spontaneous
  Country: US (occurrence: US)
  Receive Date: 20210715
  Receipt Date: 20210723
  Transmission Date: 20211014
  Serious: Yes (Life-Threatening, Hospitalization)
  Sender: FDA-Public Use
  Company Number: US-TEVA-2021-US-1931339

PATIENT
  Age: 41 Year
  Sex: Female

DRUGS (11)
  1. METHYLPREDNISOLONE. [Suspect]
     Active Substance: METHYLPREDNISOLONE
     Indication: RESPIRATORY FAILURE
  2. SEVOFLURANE. [Suspect]
     Active Substance: SEVOFLURANE
     Indication: STATUS ASTHMATICUS
     Route: 055
  3. MAGNESIUM [Suspect]
     Active Substance: MAGNESIUM
     Indication: ACUTE RESPIRATORY FAILURE
     Route: 042
  4. CISATRACURIUM. [Suspect]
     Active Substance: CISATRACURIUM
     Indication: NEUROMUSCULAR BLOCKADE
     Route: 065
  5. ALBUTEROL. [Suspect]
     Active Substance: ALBUTEROL
     Indication: RESPIRATORY FAILURE
  6. MAGNESIUM [Suspect]
     Active Substance: MAGNESIUM
     Indication: RESPIRATORY FAILURE
  7. HEPARIN [Suspect]
     Active Substance: HEPARIN SODIUM
     Indication: ANTICOAGULANT THERAPY
     Route: 065
  8. ALBUTEROL. [Suspect]
     Active Substance: ALBUTEROL
     Indication: ACUTE RESPIRATORY FAILURE
     Route: 065
  9. KETAMINE [Suspect]
     Active Substance: KETAMINE
     Indication: ANAESTHESIA
     Route: 065
  10. EPINEPHRINE. [Suspect]
     Active Substance: EPINEPHRINE
     Indication: CARDIO-RESPIRATORY ARREST
     Route: 065
  11. METHYLPREDNISOLONE. [Suspect]
     Active Substance: METHYLPREDNISOLONE
     Indication: ACUTE RESPIRATORY FAILURE
     Route: 042

REACTIONS (3)
  - Treatment failure [Unknown]
  - Live birth [Unknown]
  - Maternal exposure during pregnancy [Unknown]
